FAERS Safety Report 5232171-1 (Version None)
Quarter: 2007Q1

REPORT INFORMATION
  Report Type: 
  Country: None (occurrence: None)
  Receive Date: 20061205
  Receipt Date: 20060824
  Transmission Date: 20070707
  Serious: No
  Sender: FDA-Public Use
  Company Number: PHEH2006US10876

PATIENT
  Age: 89 Year
  Sex: Male

DRUGS (2)
  1. EXJADE [Suspect]
     Dosage: SEE IMAGE
     Route: 048
     Dates: start: 20060804, end: 20060810
  2. EXJADE [Suspect]
     Dosage: SEE IMAGE
     Route: 048
     Dates: start: 20060811

REACTIONS (2)
  - ABDOMINAL PAIN [None]
  - CONSTIPATION [None]
